FAERS Safety Report 7534048-5 (Version None)
Quarter: 2011Q2

REPORT INFORMATION
  Report Type: 
  Country: None (occurrence: None)
  Receive Date: 20110608
  Receipt Date: 20060911
  Transmission Date: 20111010
  Serious: Yes (Death, Other)
  Sender: FDA-Public Use
  Company Number: PHMT2006CA00501

PATIENT
  Sex: Male

DRUGS (2)
  1. CLOZAPINE [Suspect]
     Dates: end: 20060106
  2. CLOZAPINE [Suspect]
     Route: 048
     Dates: start: 20031210, end: 20051001

REACTIONS (4)
  - HAEMOGLOBIN DECREASED [None]
  - ANAEMIA [None]
  - HIP FRACTURE [None]
  - DEATH [None]
